FAERS Safety Report 15898773 (Version 1)
Quarter: 2019Q1

REPORT INFORMATION
  Report Type: Report from Study
  Country: None (occurrence: IT)
  Receive Date: 20190201
  Receipt Date: 20190201
  Transmission Date: 20190417
  Serious: Yes (Hospitalization)
  Sender: FDA-Public Use
  Company Number: IT-ABBVIE-19S-083-2646826-00

PATIENT
  Age: 59 Year
  Sex: Male

DRUGS (1)
  1. DUODOPA [Suspect]
     Active Substance: CARBIDOPA\LEVODOPA
     Indication: PARKINSON^S DISEASE
     Dosage: MD: 6,5+3 CR: 2,5 ED: 2,5
     Route: 050
     Dates: start: 20171024

REACTIONS (1)
  - Lung neoplasm [Not Recovered/Not Resolved]

NARRATIVE: CASE EVENT DATE: 201901
